FAERS Safety Report 21501418 (Version 2)
Quarter: 2022Q4

REPORT INFORMATION
  Report Type: Report from Study
  Country: EC (occurrence: None)
  Receive Date: 20221025
  Receipt Date: 20221223
  Transmission Date: 20230112
  Serious: Yes (Hospitalization)
  Sender: FDA-Public Use
  Company Number: EC-Merck Healthcare KGaA-9359459

PATIENT
  Sex: Female

DRUGS (1)
  1. REBIF [Suspect]
     Active Substance: INTERFERON BETA-1A
     Indication: Multiple sclerosis
     Route: 058
     Dates: start: 20211022

REACTIONS (4)
  - Angiopathy [Unknown]
  - Anxiety [Unknown]
  - Fatigue [Unknown]
  - Depression [Unknown]
